FAERS Safety Report 17550718 (Version 2)
Quarter: 2020Q4

REPORT INFORMATION
  Report Type: Spontaneous
  Country: IT (occurrence: IT)
  Receive Date: 20200317
  Receipt Date: 20201029
  Transmission Date: 20210113
  Serious: Yes (Other)
  Sender: FDA-Public Use
  Company Number: IT-PFIZER INC-2020107654

PATIENT
  Sex: Female

DRUGS (4)
  1. CARBOPLATIN. [Concomitant]
     Active Substance: CARBOPLATIN
     Indication: OVARIAN EPITHELIAL CANCER
     Dosage: UNK (DOSE: AUC 5)
  2. PACLITAXEL. [Suspect]
     Active Substance: PACLITAXEL
     Indication: OVARIAN EPITHELIAL CANCER
     Dosage: UNK (175MG/MQ; ADMINISTERED ON DAY 1 EVERY 21 DAYS)
  3. BEVACIZUMAB. [Concomitant]
     Active Substance: BEVACIZUMAB
     Indication: OVARIAN EPITHELIAL CANCER
     Dosage: 15 MG/KG, UNK (ADMINISTERED ON DAY 1 EVERY 21 DAYS)
  4. SODIUM CHLORIDE. [Concomitant]
     Active Substance: SODIUM CHLORIDE
     Indication: VEHICLE SOLUTION USE
     Dosage: 100 ML, UNK (PACLITAXEL WAS ADMINISTERED IN 100ML SODIUM CHLORIDE, OVER 30 MINUTES)

REACTIONS (5)
  - Hypersensitivity [Recovered/Resolved]
  - Off label use [Unknown]
  - Back pain [Recovered/Resolved]
  - Hot flush [Recovered/Resolved]
  - Product use in unapproved indication [Unknown]
